FAERS Safety Report 6957378-4 (Version None)
Quarter: 2010Q3

REPORT INFORMATION
  Report Type: 
  Country: None (occurrence: None)
  Receive Date: 20100826
  Receipt Date: 20100820
  Transmission Date: 20110219
  Serious: Yes (Other)
  Sender: FDA-Public Use
  Company Number: TRP_07207_2010

PATIENT
  Sex: Male
  Weight: 63.5036 kg

DRUGS (2)
  1. RIBASPHERE [Suspect]
     Indication: HEPATITIS C
     Dosage: 1000 MG, [QD] ORAL
     Route: 048
  2. PEG-INTRON [Suspect]
     Indication: HEPATITIS C
     Dosage: 120 UG, [QW] SUBCUTANEOUS
     Route: 058

REACTIONS (3)
  - AGITATION [None]
  - ANXIETY [None]
  - DEVICE BREAKAGE [None]
